FAERS Safety Report 25410652 (Version 1)
Quarter: 2025Q2

REPORT INFORMATION
  Report Type: Report from Study
  Country: FR (occurrence: FR)
  Receive Date: 20250609
  Receipt Date: 20250609
  Transmission Date: 20250717
  Serious: Yes (Other)
  Sender: CELLTRION
  Company Number: FR-CELLTRION INC.-2025FR017806

PATIENT

DRUGS (16)
  1. INFLIXIMAB-DYYB [Suspect]
     Active Substance: INFLIXIMAB-DYYB
     Indication: Ankylosing spondylitis
     Dosage: 120 MG ONCE PER 2 WEEKS
     Route: 058
     Dates: start: 20230925
  2. INFLIXIMAB-DYYB [Suspect]
     Active Substance: INFLIXIMAB-DYYB
     Dosage: 120 MG ONCE PER 2 WEEKS
     Route: 058
     Dates: start: 20231009
  3. INFLIXIMAB-DYYB [Suspect]
     Active Substance: INFLIXIMAB-DYYB
     Dosage: 120 MG ONCE PER 2 WEEKS
     Route: 058
     Dates: start: 20231023
  4. INFLIXIMAB-DYYB [Suspect]
     Active Substance: INFLIXIMAB-DYYB
     Dosage: 120 MG ONCE PER 2 WEEKS
     Route: 058
     Dates: start: 20231117
  5. INFLIXIMAB-DYYB [Suspect]
     Active Substance: INFLIXIMAB-DYYB
     Dosage: 120 MG ONCE PER 2 WEEKS
     Route: 058
     Dates: start: 20231201
  6. INFLIXIMAB-DYYB [Suspect]
     Active Substance: INFLIXIMAB-DYYB
     Dosage: 120 MG ONCE PER 2 WEEKS
     Route: 058
     Dates: start: 20231215
  7. INFLIXIMAB-DYYB [Suspect]
     Active Substance: INFLIXIMAB-DYYB
     Dosage: 120 MG ONCE PER 2 WEEKS
     Route: 058
     Dates: start: 20240105
  8. INFLIXIMAB-DYYB [Suspect]
     Active Substance: INFLIXIMAB-DYYB
     Dosage: 120 MG ONCE PER 2 WEEKS
     Route: 058
     Dates: start: 20240119
  9. INFLIXIMAB-DYYB [Suspect]
     Active Substance: INFLIXIMAB-DYYB
     Dosage: 120 MG ONCE PER 2 WEEKS
     Route: 058
     Dates: start: 20240209
  10. INFLIXIMAB-DYYB [Suspect]
     Active Substance: INFLIXIMAB-DYYB
     Dosage: 120 MG ONCE PER 2 WEEKS
     Route: 058
     Dates: start: 20240216
  11. INFLIXIMAB-DYYB [Suspect]
     Active Substance: INFLIXIMAB-DYYB
     Dosage: 120 MG ONCE PER 2 WEEKS
     Route: 058
     Dates: start: 20240301
  12. INFLIXIMAB-DYYB [Suspect]
     Active Substance: INFLIXIMAB-DYYB
     Dosage: 120 MG ONCE PER 2 WEEKS
     Route: 058
     Dates: start: 20240315
  13. INFLIXIMAB-DYYB [Suspect]
     Active Substance: INFLIXIMAB-DYYB
     Dosage: 120 MG ONCE PER 2 WEEKS
     Route: 058
     Dates: start: 20240329
  14. INFLIXIMAB-DYYB [Suspect]
     Active Substance: INFLIXIMAB-DYYB
     Dosage: 120 MG ONCE PER 2 WEEKS
     Route: 058
     Dates: start: 20240412
  15. INFLIXIMAB-DYYB [Suspect]
     Active Substance: INFLIXIMAB-DYYB
     Dosage: 120 MG ONCE PER 2 WEEKS
     Route: 058
     Dates: start: 20240426
  16. INFLIXIMAB-DYYB [Suspect]
     Active Substance: INFLIXIMAB-DYYB
     Dosage: 120 MG ONCE PER 2 WEEKS
     Route: 058
     Dates: start: 20240510

REACTIONS (1)
  - Abortion spontaneous [Recovered/Resolved]

NARRATIVE: CASE EVENT DATE: 20240205
